APPROVED DRUG PRODUCT: ELLENCE
Active Ingredient: EPIRUBICIN HYDROCHLORIDE
Strength: 50MG/25ML (2MG/ML)
Dosage Form/Route: INJECTABLE;INJECTION
Application: N050778 | Product #002 | TE Code: AP
Applicant: PFIZER INC
Approved: Sep 15, 1999 | RLD: Yes | RS: No | Type: RX